FAERS Safety Report 23978419 (Version 1)
Quarter: 2024Q2

REPORT INFORMATION
  Report Type: Spontaneous
  Country: GB (occurrence: GB)
  Receive Date: 20240614
  Receipt Date: 20240614
  Transmission Date: 20240716
  Serious: Yes (Disabling, Other)
  Sender: FDA-Public Use
  Company Number: None

PATIENT
  Age: 84 Year
  Sex: Female
  Weight: 63 kg

DRUGS (3)
  1. AMLODIPINE [Suspect]
     Active Substance: AMLODIPINE BESYLATE
     Indication: Product used for unknown indication
     Dosage: 1 DOSAGE FORM, QD
     Route: 065
     Dates: start: 20240507, end: 20240606
  2. Spikevax XBB.1.5 [Concomitant]
     Dosage: 0.5 MILLILITER
     Route: 030
     Dates: start: 20240425, end: 20240425
  3. RAMIPRIL [Concomitant]
     Active Substance: RAMIPRIL
     Indication: Essential hypertension
     Dosage: 1 DOSAGE FORM, QD
     Route: 065
     Dates: start: 20240606

REACTIONS (1)
  - Visual impairment [Unknown]
